FAERS Safety Report 19777927 (Version 1)
Quarter: 2021Q3

REPORT INFORMATION
  Report Type: Spontaneous
  Country: FR (occurrence: FR)
  Receive Date: 20210902
  Receipt Date: 20210902
  Transmission Date: 20211014
  Serious: Yes (Life-Threatening, Hospitalization, Other)
  Sender: FDA-Public Use
  Company Number: FR-GLAXOSMITHKLINE-FR2021185312

PATIENT
  Age: 58 Year
  Sex: Female

DRUGS (4)
  1. FLOXYFRAL [Concomitant]
     Active Substance: FLUVOXAMINE
     Indication: PRODUCT USED FOR UNKNOWN INDICATION
     Dosage: 100 MG, QD, (100 MILLIGRAM, QD)
     Route: 048
     Dates: end: 20000229
  2. LAMICTAL [Suspect]
     Active Substance: LAMOTRIGINE
     Indication: TRIGEMINAL NEURALGIA
     Dosage: 25 MG, QD, (25 MILLIGRAM, QD)
     Route: 048
     Dates: start: 20000217, end: 20000229
  3. TRIATEC (RAMIPRIL) [Suspect]
     Active Substance: RAMIPRIL
     Indication: PRODUCT USED FOR UNKNOWN INDICATION
     Dosage: 1.25 MG, QD, (1.25 MILLIGRAM, QD)
     Route: 048
     Dates: end: 20000229
  4. LANZOR [Suspect]
     Active Substance: LANSOPRAZOLE
     Indication: PRODUCT USED FOR UNKNOWN INDICATION
     Dosage: 15 MG, QD, (15 MILLIGRAM, QD)
     Route: 048
     Dates: start: 19991022, end: 20000229

REACTIONS (11)
  - Raynaud^s phenomenon [Recovered/Resolved]
  - Pancytopenia [Recovered/Resolved]
  - Cardiac failure [Recovered/Resolved]
  - Shock [Recovered/Resolved]
  - Rash macular [Recovered/Resolved]
  - Hypotension [Recovered/Resolved]
  - Hepatitis [Recovered/Resolved]
  - Pneumonitis [Recovered/Resolved]
  - Rash morbilliform [Recovered/Resolved]
  - Circulatory collapse [Recovered/Resolved]
  - Pleural effusion [Recovered/Resolved]

NARRATIVE: CASE EVENT DATE: 20000229
